FAERS Safety Report 12206749 (Version 1)
Quarter: 2016Q1

REPORT INFORMATION
  Report Type: Spontaneous
  Country: US (occurrence: None)
  Receive Date: 20160323
  Receipt Date: 20160323
  Transmission Date: 20160526
  Serious: No
  Sender: FDA-Public Use
  Company Number: None

PATIENT
  Age: 50 Year
  Sex: Female

DRUGS (1)
  1. SPRYCEL [Suspect]
     Active Substance: DASATINIB
     Indication: CHRONIC MYELOID LEUKAEMIA
     Route: 048
     Dates: start: 20160121

REACTIONS (6)
  - Nausea [None]
  - Rash [None]
  - Weight increased [None]
  - Feeling abnormal [None]
  - Gastric disorder [None]
  - Abdominal distension [None]

NARRATIVE: CASE EVENT DATE: 201601
